FAERS Safety Report 11287530 (Version 1)
Quarter: 2015Q3

REPORT INFORMATION
  Report Type: Spontaneous
  Country: US (occurrence: None)
  Receive Date: 20150720
  Receipt Date: 20150720
  Transmission Date: 20151125
  Serious: Yes (Disabling, Other)
  Sender: FDA-Public Use
  Company Number: None

PATIENT
  Age: 69 Year
  Sex: Female
  Weight: 81.65 kg

DRUGS (1)
  1. LEVOFLOXACIN 500 MG AUROBINDO [Suspect]
     Active Substance: LEVOFLOXACIN
     Indication: SINUSITIS
     Dosage: TAKEN BY MOUTH
     Dates: start: 20140115, end: 20140118

REACTIONS (15)
  - Insomnia [None]
  - Tic [None]
  - Headache [None]
  - Abasia [None]
  - Paranoia [None]
  - Tinnitus [None]
  - Tendon rupture [None]
  - Neuropathy peripheral [None]
  - Feeding disorder [None]
  - Lymphadenopathy [None]
  - Brain injury [None]
  - Mental impairment [None]
  - Hallucination [None]
  - Nightmare [None]
  - Skin exfoliation [None]

NARRATIVE: CASE EVENT DATE: 20150615
